FAERS Safety Report 8557939-5 (Version None)
Quarter: 2012Q3

REPORT INFORMATION
  Report Type: 
  Country: None (occurrence: None)
  Receive Date: 20120801
  Receipt Date: 20120728
  Transmission Date: 20120928
  Serious: Yes (Hospitalization, Other)
  Sender: FDA-Public Use
  Company Number: PHHY2012LU062037

PATIENT
  Sex: Male

DRUGS (2)
  1. FLUTICASONE PROPIONATE/SALMETEROL [Concomitant]
     Indication: ASTHMA
  2. GILENYA [Suspect]
     Indication: MULTIPLE SCLEROSIS
     Route: 048
     Dates: start: 20120314

REACTIONS (4)
  - CENTRAL NERVOUS SYSTEM LESION [None]
  - BRADYCARDIA [None]
  - ORAL HERPES [None]
  - BLOOD PRESSURE DECREASED [None]
